FAERS Safety Report 14449216 (Version 2)
Quarter: 2018Q1

REPORT INFORMATION
  Report Type: Report from Study
  Country: LB (occurrence: LB)
  Receive Date: 20180127
  Receipt Date: 20180201
  Transmission Date: 20180509
  Serious: Yes (Death)
  Sender: FDA-Public Use
  Company Number: LB-ROCHE-2061692

PATIENT
  Age: 50 Year
  Sex: Female
  Weight: 52 kg

DRUGS (3)
  1. PERJETA [Suspect]
     Active Substance: PERTUZUMAB
     Route: 042
     Dates: start: 20170923, end: 20171021
  2. HERCEPTIN [Suspect]
     Active Substance: TRASTUZUMAB
     Indication: BREAST CANCER METASTATIC
     Route: 042
     Dates: start: 20170822, end: 20171021
  3. PERJETA [Suspect]
     Active Substance: PERTUZUMAB
     Indication: BREAST CANCER METASTATIC
     Route: 042
     Dates: start: 20170822, end: 20170822

REACTIONS (1)
  - Death [Fatal]

NARRATIVE: CASE EVENT DATE: 20180103
